FAERS Safety Report 13410146 (Version 2)
Quarter: 2017Q2

REPORT INFORMATION
  Report Type: Spontaneous
  Country: DE (occurrence: DE)
  Receive Date: 20170406
  Receipt Date: 20170509
  Transmission Date: 20170830
  Serious: Yes (Other)
  Sender: FDA-Public Use
  Company Number: PHHY2017DE049242

PATIENT
  Sex: Female

DRUGS (2)
  1. WELLNARA [Concomitant]
     Indication: MENOPAUSAL DISORDER
     Route: 065
  2. GLIVEC [Suspect]
     Active Substance: IMATINIB MESYLATE
     Indication: CHRONIC MYELOID LEUKAEMIA
     Dosage: 400 MG, QD
     Route: 065

REACTIONS (2)
  - Menopausal disorder [Unknown]
  - Thyroid mass [Unknown]

NARRATIVE: CASE EVENT DATE: 2016
